FAERS Safety Report 15010997 (Version 1)
Quarter: 2018Q2

REPORT INFORMATION
  Report Type: Spontaneous
  Country: US (occurrence: US)
  Receive Date: 20180614
  Receipt Date: 20180614
  Transmission Date: 20180711
  Serious: No
  Sender: FDA-Public Use
  Company Number: US-PERRIGO-18US003277

PATIENT
  Sex: Female
  Weight: 54.42 kg

DRUGS (1)
  1. GENTAMICIN SULFATE. [Suspect]
     Active Substance: GENTAMICIN SULFATE
     Indication: PROPHYLAXIS
     Dosage: ONE APPLICATION, QD
     Route: 061
     Dates: start: 2017

REACTIONS (2)
  - Exposure to unspecified agent [Recovered/Resolved]
  - Off label use [Not Recovered/Not Resolved]

NARRATIVE: CASE EVENT DATE: 2017
